FAERS Safety Report 8809350 (Version 1)
Quarter: 2012Q4

REPORT INFORMATION
  Report Type: 
  Country: AU (occurrence: AU)
  Receive Date: 20120926
  Receipt Date: 20120926
  Transmission Date: 20130627
  Serious: Yes (Hospitalization, Other)
  Sender: FDA-Public Use
  Company Number: AU-JNJFOC-20120909492

PATIENT
  Age: 35 Year
  Sex: Male

DRUGS (2)
  1. NICOTINE PATCH [Suspect]
     Route: 062
  2. NICOTINE PATCH [Suspect]
     Indication: SMOKING CESSATION THERAPY
     Route: 062

REACTIONS (2)
  - Mania [Recovered/Resolved]
  - Insomnia [Recovered/Resolved]
